FAERS Safety Report 7278574-5 (Version None)
Quarter: 2011Q1

REPORT INFORMATION
  Report Type: 
  Country: None (occurrence: None)
  Receive Date: 20110207
  Receipt Date: 20110131
  Transmission Date: 20110831
  Serious: Yes (Other)
  Sender: FDA-Public Use
  Company Number: GXKR2011DE00789

PATIENT
  Sex: Male

DRUGS (3)
  1. PREDNISON HEXAL [Suspect]
     Dosage: 20 MG, QD
     Route: 048
  2. MARCUMAR [Concomitant]
     Dosage: UNK
  3. MARCUMAR [Concomitant]
     Dosage: UNK
     Dates: end: 20100101

REACTIONS (6)
  - FATIGUE [None]
  - VISUAL IMPAIRMENT [None]
  - DIZZINESS [None]
  - SOMNOLENCE [None]
  - IMPAIRED WORK ABILITY [None]
  - DYSGEUSIA [None]
